FAERS Safety Report 9102445 (Version 2)
Quarter: 2013Q1

REPORT INFORMATION
  Report Type: Spontaneous
  Country: US (occurrence: US)
  Receive Date: 20130219
  Receipt Date: 20130227
  Transmission Date: 20140127
  Serious: Yes (Hospitalization)
  Sender: FDA-Public Use
  Company Number: US-GILEAD-2013-0069973

PATIENT
  Age: 52 Year
  Sex: Female

DRUGS (2)
  1. LETAIRIS [Suspect]
     Indication: SCLERODERMA
     Dosage: 10 MG, UNK
     Dates: start: 20120606
  2. LETAIRIS [Suspect]
     Indication: PULMONARY HYPERTENSION

REACTIONS (1)
  - Haemoglobin abnormal [Unknown]
